FAERS Safety Report 9339227 (Version 1)
Quarter: 2013Q2

REPORT INFORMATION
  Report Type: Spontaneous
  Country: US (occurrence: None)
  Receive Date: 20130606
  Receipt Date: 20130606
  Transmission Date: 20140414
  Serious: Yes (Hospitalization, Disabling, Other)
  Sender: FDA-Public Use
  Company Number: None

PATIENT
  Age: 35 Year
  Sex: Male
  Weight: 76.66 kg

DRUGS (1)
  1. PROPECIA 1MG MERCK [Suspect]
     Indication: ALOPECIA
     Dates: start: 20130418, end: 20130504

REACTIONS (7)
  - Erectile dysfunction [None]
  - Emotional disorder [None]
  - Anal spasm [None]
  - Male genital atrophy [None]
  - Genital paraesthesia [None]
  - Crying [None]
  - Feeling abnormal [None]
